FAERS Safety Report 25929594 (Version 2)
Quarter: 2025Q4

REPORT INFORMATION
  Report Type: Spontaneous
  Country: IL (occurrence: None)
  Receive Date: 20251016
  Receipt Date: 20251024
  Transmission Date: 20260118
  Serious: Yes (Death, Other)
  Sender: ORGANON
  Company Number: US-ORGANON-O2510USA001151

PATIENT
  Sex: Male

DRUGS (1)
  1. FINASTERIDE [Suspect]
     Active Substance: FINASTERIDE
     Indication: Alopecia
     Dosage: UNK

REACTIONS (2)
  - Completed suicide [Fatal]
  - Neuropsychological symptoms [Not Recovered/Not Resolved]
